FAERS Safety Report 7997420-5 (Version None)
Quarter: 2011Q4

REPORT INFORMATION
  Report Type: 
  Country: None (occurrence: None)
  Receive Date: 20111221
  Receipt Date: 20111219
  Transmission Date: 20120403
  Serious: Yes (Other)
  Sender: FDA-Public Use
  Company Number: FR-JNJFOC-20111207160

PATIENT

DRUGS (47)
  1. DOXORUBICIN HCL [Suspect]
     Indication: DIFFUSE LARGE B-CELL LYMPHOMA
     Route: 042
  2. RITUXIMAB [Suspect]
     Route: 065
  3. CYCLOPHOSPHAMIDE [Suspect]
     Route: 065
  4. BLEOMYCIN SULFATE [Suspect]
     Indication: DIFFUSE LARGE B-CELL LYMPHOMA
     Route: 065
  5. PREDNISONE TAB [Suspect]
     Indication: DIFFUSE LARGE B-CELL LYMPHOMA
     Route: 065
  6. DOXORUBICIN HCL [Suspect]
     Route: 042
  7. FILGRASTIM [Suspect]
     Indication: DIFFUSE LARGE B-CELL LYMPHOMA
     Route: 058
  8. METHOTREXATE [Suspect]
     Route: 042
  9. IFOSFAMIDE [Suspect]
     Indication: DIFFUSE LARGE B-CELL LYMPHOMA
     Route: 065
  10. IFOSFAMIDE [Suspect]
     Route: 065
  11. RITUXIMAB [Suspect]
     Route: 065
  12. CYCLOPHOSPHAMIDE [Suspect]
     Route: 065
  13. ELDISINE [Suspect]
     Route: 065
  14. METHOTREXATE [Suspect]
     Route: 037
  15. IFOSFAMIDE [Suspect]
     Route: 065
  16. DOXORUBICIN HCL [Suspect]
     Route: 042
  17. RITUXIMAB [Suspect]
     Route: 065
  18. ELDISINE [Suspect]
     Indication: DIFFUSE LARGE B-CELL LYMPHOMA
     Route: 065
  19. ELDISINE [Suspect]
     Route: 065
  20. BLEOMYCIN SULFATE [Suspect]
     Route: 065
  21. PREDNISONE TAB [Suspect]
     Route: 065
  22. ETOPOSIDE [Suspect]
     Indication: DIFFUSE LARGE B-CELL LYMPHOMA
     Route: 065
  23. CYTARABINE [Suspect]
     Route: 058
  24. DOXORUBICIN HCL [Suspect]
     Route: 042
  25. CYCLOPHOSPHAMIDE [Suspect]
     Route: 065
  26. PREDNISONE TAB [Suspect]
     Route: 065
  27. METHOTREXATE [Suspect]
     Indication: PROPHYLAXIS
     Route: 037
  28. RITUXIMAB [Suspect]
     Route: 065
  29. RITUXIMAB [Suspect]
     Route: 065
  30. CYCLOPHOSPHAMIDE [Suspect]
     Indication: DIFFUSE LARGE B-CELL LYMPHOMA
     Route: 065
  31. METHOTREXATE [Suspect]
     Route: 037
  32. RITUXIMAB [Suspect]
     Indication: DIFFUSE LARGE B-CELL LYMPHOMA
     Route: 065
  33. RITUXIMAB [Suspect]
     Route: 065
  34. ELDISINE [Suspect]
     Route: 065
  35. BLEOMYCIN SULFATE [Suspect]
     Route: 065
  36. PREDNISONE TAB [Suspect]
     Route: 065
  37. PREDNISONE TAB [Suspect]
     Route: 065
  38. IFOSFAMIDE [Suspect]
     Route: 065
  39. CYTARABINE [Suspect]
     Indication: DIFFUSE LARGE B-CELL LYMPHOMA
     Route: 058
  40. RITUXIMAB [Suspect]
     Route: 065
  41. BLEOMYCIN SULFATE [Suspect]
     Route: 065
  42. METHOTREXATE [Suspect]
     Route: 037
  43. METHOTREXATE [Suspect]
     Indication: DIFFUSE LARGE B-CELL LYMPHOMA
     Route: 042
  44. LEUCOVORIN CALCIUM [Suspect]
     Indication: DIFFUSE LARGE B-CELL LYMPHOMA
     Route: 065
  45. ETOPOSIDE [Suspect]
     Route: 065
  46. ETOPOSIDE [Suspect]
     Route: 065
  47. ETOPOSIDE [Suspect]
     Route: 065

REACTIONS (1)
  - LUNG NEOPLASM MALIGNANT [None]
